FAERS Safety Report 7858435-0 (Version None)
Quarter: 2011Q4

REPORT INFORMATION
  Report Type: 
  Country: None (occurrence: None)
  Receive Date: 20111027
  Receipt Date: 20111014
  Transmission Date: 20120403
  Serious: Yes (Hospitalization)
  Sender: FDA-Public Use
  Company Number: JP-JNJFOC-20101104664

PATIENT
  Age: 73 Year
  Sex: Female
  Weight: 47 kg

DRUGS (20)
  1. REMICADE [Suspect]
     Route: 042
     Dates: start: 20091006
  2. REMICADE [Suspect]
     Route: 042
     Dates: start: 20100527
  3. REMICADE [Suspect]
     Route: 042
     Dates: start: 20090811
  4. REMICADE [Suspect]
     Route: 042
     Dates: start: 20100204
  5. ANTIHISTAMINES [Concomitant]
     Indication: PROPHYLAXIS
     Dosage: ADMINISTERED ON ALL INFUSION DATES THROUGH 27-MAY-2010
     Dates: start: 20090518
  6. REMICADE [Suspect]
     Indication: CROHN'S DISEASE
     Route: 042
     Dates: start: 20091210
  7. REMICADE [Suspect]
     Route: 042
     Dates: start: 20090601
  8. REMICADE [Suspect]
     Route: 042
     Dates: start: 20100401
  9. STEROIDS NOS [Concomitant]
     Indication: PROPHYLAXIS
     Dosage: ADMINISTERED ON ALL INFUSION DATES THROUGH 27-MAY-2010
     Dates: start: 20090518
  10. ALENDRONATE SODIUM [Concomitant]
     Indication: OSTEONECROSIS
     Route: 048
  11. PENTASA [Concomitant]
     Indication: CROHN'S DISEASE
     Route: 048
     Dates: start: 20080408
  12. PREDNISOLONE [Concomitant]
     Indication: CROHN'S DISEASE
     Route: 048
     Dates: start: 20080526
  13. ACETAMINOPHEN [Concomitant]
     Indication: PROPHYLAXIS
     Dosage: ADMINISTERED ON ALL INFUSION DATES THROUGH 27-MAY-2010
     Dates: start: 20090518
  14. RABEPRAZOLE SODIUM [Concomitant]
     Indication: PROPHYLAXIS
     Route: 048
     Dates: start: 20090414
  15. LAXOBERON [Concomitant]
     Indication: PROPHYLAXIS
     Route: 048
     Dates: start: 20090527, end: 20090615
  16. REMICADE [Suspect]
     Route: 042
     Dates: start: 20090518
  17. FERROUS CITRATE [Concomitant]
     Indication: IRON DEFICIENCY ANAEMIA
     Dates: start: 20090701, end: 20090715
  18. ASPIRIN [Concomitant]
     Indication: TEMPORAL ARTERITIS
     Route: 048
     Dates: start: 20080625
  19. CELECOXIB [Concomitant]
     Indication: TEMPORAL ARTERITIS
     Route: 048
  20. FERRICON [Concomitant]
     Indication: IRON DEFICIENCY ANAEMIA
     Dates: start: 20090704, end: 20090707

REACTIONS (2)
  - PERITONEAL ABSCESS [None]
  - PERITONEAL NEOPLASM [None]
